FAERS Safety Report 13367372 (Version 3)
Quarter: 2025Q2

REPORT INFORMATION
  Report Type: Spontaneous
  Country: BR (occurrence: BR)
  Receive Date: 20170324
  Receipt Date: 20250505
  Transmission Date: 20250717
  Serious: Yes (Life-Threatening, Hospitalization, Other)
  Sender: STRIDES
  Company Number: BR-MLMSERVICE-20170505-0714482-1

PATIENT

DRUGS (9)
  1. VANCOMYCIN [Suspect]
     Active Substance: VANCOMYCIN
     Indication: Endophthalmitis
     Route: 065
  2. VANCOMYCIN [Suspect]
     Active Substance: VANCOMYCIN
     Indication: Endophthalmitis
  3. CEPHALOTHIN [Suspect]
     Active Substance: CEPHALOTHIN
     Indication: Endophthalmitis
     Route: 042
  4. CEFTAZIDIME [Suspect]
     Active Substance: CEFTAZIDIME
     Indication: Endophthalmitis
     Route: 031
  5. MEROPENEM [Suspect]
     Active Substance: MEROPENEM
     Indication: Klebsiella test positive
     Route: 042
  6. MEROPENEM [Suspect]
     Active Substance: MEROPENEM
     Indication: Endophthalmitis
  7. MOXIFLOXACIN [Concomitant]
     Active Substance: MOXIFLOXACIN
     Indication: Endophthalmitis
     Route: 061
  8. POLYMYXIN B [Concomitant]
     Active Substance: POLYMYXIN B
     Indication: Evidence based treatment
     Route: 042
  9. ATROPINE [Concomitant]
     Active Substance: ATROPINE
     Indication: Endophthalmitis
     Route: 065

REACTIONS (14)
  - Hypertension [Recovered/Resolved]
  - Hepatic enzyme increased [Recovering/Resolving]
  - Tachypnoea [Recovered/Resolved]
  - Tachycardia [Recovered/Resolved]
  - Tremor [Recovering/Resolving]
  - Disorientation [Recovering/Resolving]
  - Hyponatraemia [Recovering/Resolving]
  - Leukopenia [Recovered/Resolved]
  - Eosinophilia [Recovered/Resolved]
  - Rash macular [Recovered/Resolved]
  - Hypotension [Recovered/Resolved]
  - Dermatitis allergic [Recovered/Resolved]
  - Pyrexia [Recovered/Resolved]
  - Drug reaction with eosinophilia and systemic symptoms [Recovering/Resolving]
